FAERS Safety Report 16849837 (Version 1)
Quarter: 2019Q4

REPORT INFORMATION
  Report Type: Spontaneous
  Country: US (occurrence: US)
  Receive Date: 20190925
  Receipt Date: 20190925
  Transmission Date: 20200122
  Serious: Yes (Life-Threatening, Hospitalization)
  Sender: FDA-Public Use
  Company Number: None

PATIENT
  Age: 57 Year
  Sex: Male
  Weight: 134.1 kg

DRUGS (5)
  1. DIPHENHYDRAMINE  25 MG PO PRIOR INF. [Concomitant]
     Dates: start: 20190815, end: 20190815
  2. MAPAP 650MG PO PRIOR IVIG [Concomitant]
     Dates: start: 20190815, end: 20190815
  3. GAMUNEX-C [Suspect]
     Active Substance: HUMAN IMMUNOGLOBULIN G
     Indication: MYASTHENIA GRAVIS
     Dosage: ?          OTHER FREQUENCY:ONCE EVERY 4 WEEKS;?
     Route: 042
     Dates: start: 20170710, end: 20190815
  4. NACL 0.9% 500ML BOLUS PRIOR IVIG [Concomitant]
     Dates: start: 20190815, end: 20190815
  5. GAMUNEX-C [Suspect]
     Active Substance: HUMAN IMMUNOGLOBULIN G
     Indication: MYASTHENIA GRAVIS
     Dosage: ?          OTHER FREQUENCY:ONCE EVERY 4 WEEKS;?
     Route: 042
     Dates: start: 20170710, end: 20190815

REACTIONS (2)
  - Thrombosis [None]
  - Therapy cessation [None]

NARRATIVE: CASE EVENT DATE: 20190815
